FAERS Safety Report 10017241 (Version 1)
Quarter: 2014Q1

REPORT INFORMATION
  Report Type: Spontaneous
  Country: US (occurrence: US)
  Receive Date: 20140318
  Receipt Date: 20140318
  Transmission Date: 20141002
  Serious: No
  Sender: FDA-Public Use
  Company Number: US-009507513-1403USA006811

PATIENT
  Sex: Female

DRUGS (1)
  1. JANUMET [Suspect]
     Dosage: 50 MG/100 MG, 1 PILL, FRERQUENCY: 2 X
     Dates: start: 2013

REACTIONS (2)
  - Wrong technique in drug usage process [Unknown]
  - Dysphagia [Unknown]
